FAERS Safety Report 7189393-2 (Version None)
Quarter: 2010Q4

REPORT INFORMATION
  Report Type: 
  Country: None (occurrence: None)
  Receive Date: 20101222
  Receipt Date: 20100916
  Transmission Date: 20110411
  Serious: No
  Sender: FDA-Public Use
  Company Number: US-AMGEN-TCS422814

PATIENT

DRUGS (5)
  1. ENBREL [Suspect]
     Indication: RHEUMATOID ARTHRITIS
     Dosage: 50 MG, QWK
     Route: 058
     Dates: start: 20100609, end: 20100916
  2. ACETAMINOPHEN AND OXYCODONE HCL [Concomitant]
     Indication: PAIN
     Dosage: UNK UNK, UNK
     Route: 048
  3. LISINOPRIL [Concomitant]
     Dosage: 10 MG, QD
     Route: 048
  4. DULOXETIME HYDROCHLORIDE [Concomitant]
     Indication: DEPRESSION
     Dosage: 60 MG, QD
     Route: 048
  5. LANSOPRAZOLE [Concomitant]
     Dosage: 30 MG, QD
     Route: 048

REACTIONS (5)
  - EXFOLIATIVE RASH [None]
  - RASH ERYTHEMATOUS [None]
  - RASH MACULAR [None]
  - RASH PRURITIC [None]
  - SKIN IRRITATION [None]
